FAERS Safety Report 10434228 (Version 4)
Quarter: 2015Q1

REPORT INFORMATION
  Report Type: Report from Study
  Country: CA (occurrence: CA)
  Receive Date: 20140905
  Receipt Date: 20150112
  Transmission Date: 20150720
  Serious: Yes (Death, Hospitalization, Other)
  Sender: FDA-Public Use
  Company Number: CA-ASTELLAS-2014US011711

PATIENT
  Age: 85 Year
  Sex: Male
  Weight: 53 kg

DRUGS (1)
  1. ENZALUTAMIDE [Suspect]
     Active Substance: ENZALUTAMIDE
     Indication: PROSTATE CANCER
     Dosage: UNK UNK, UNKNOWN FREQ.
     Route: 065

REACTIONS (6)
  - Subdural haematoma [Not Recovered/Not Resolved]
  - Subdural haematoma [Fatal]
  - Haemoglobin decreased [Recovered/Resolved]
  - Fall [Not Recovered/Not Resolved]
  - Seizure [Recovering/Resolving]
  - Pneumonia [Recovering/Resolving]

NARRATIVE: CASE EVENT DATE: 20140820
